FAERS Safety Report 11632979 (Version 1)
Quarter: 2015Q4

REPORT INFORMATION
  Report Type: Spontaneous
  Country: SE (occurrence: SE)
  Receive Date: 20151015
  Receipt Date: 20151015
  Transmission Date: 20160304
  Serious: Yes (Death, Other)
  Sender: FDA-Public Use
  Company Number: SE-ASTRAZENECA-2015SE96810

PATIENT
  Age: 58 Year
  Sex: Male

DRUGS (1)
  1. BRILIQUE [Suspect]
     Active Substance: TICAGRELOR
     Dosage: 180 MG
     Route: 048
     Dates: start: 20150929, end: 20150929

REACTIONS (2)
  - Circulatory collapse [Unknown]
  - Post procedural haemorrhage [Fatal]

NARRATIVE: CASE EVENT DATE: 20151001
